FAERS Safety Report 16388514 (Version 1)
Quarter: 2019Q2

REPORT INFORMATION
  Report Type: Spontaneous
  Country: NA (occurrence: NA)
  Receive Date: 20190604
  Receipt Date: 20190604
  Transmission Date: 20190711
  Serious: Yes (Hospitalization, Other)
  Sender: FDA-Public Use
  Company Number: NA-EPIC PHARMA LLC-2019EPC00143

PATIENT
  Age: 16 Year
  Sex: Male

DRUGS (6)
  1. MORPHINE SULFATE. [Suspect]
     Active Substance: MORPHINE SULFATE
     Indication: SPINAL ANAESTHESIA
     Dosage: 5 MG
     Route: 042
  2. MIDAZOLAM [Concomitant]
     Active Substance: MIDAZOLAM HYDROCHLORIDE
     Indication: PAIN
  3. KETAMINE [Concomitant]
     Active Substance: KETAMINE
     Indication: SPINAL ANAESTHESIA
     Dosage: 50 MG
     Route: 042
  4. KETAMINE [Concomitant]
     Active Substance: KETAMINE
     Indication: PAIN
  5. MIDAZOLAM [Concomitant]
     Active Substance: MIDAZOLAM HYDROCHLORIDE
     Indication: SPINAL ANAESTHESIA
     Dosage: 5 MG
     Route: 042
  6. MORPHINE SULFATE. [Suspect]
     Active Substance: MORPHINE SULFATE
     Indication: PAIN

REACTIONS (3)
  - Acute respiratory distress syndrome [Recovering/Resolving]
  - Shock [Recovering/Resolving]
  - Anaphylactic reaction [Recovered/Resolved]
